FAERS Safety Report 5445009-4 (Version None)
Quarter: 2007Q3

REPORT INFORMATION
  Report Type: 
  Country: None (occurrence: None)
  Receive Date: 20070731
  Receipt Date: 20070410
  Transmission Date: 20080115
  Serious: Yes (Hospitalization)
  Sender: FDA-Public Use
  Company Number: US200704000463

PATIENT
  Age: 53 Year
  Sex: Female

DRUGS (9)
  1. BYETTA [Suspect]
     Indication: TYPE 2 DIABETES MELLITUS
     Dosage: 5 UG, 2/D, SUBCUTANEOUS; 10 UG, 2/D, SUBCUTANEOUS
     Route: 058
     Dates: end: 20060308
  2. BYETTA [Suspect]
     Indication: TYPE 2 DIABETES MELLITUS
     Dosage: 5 UG, 2/D, SUBCUTANEOUS; 10 UG, 2/D, SUBCUTANEOUS
     Route: 058
     Dates: start: 20060911
  3. PREMARIN (ESTROGENS CONJUGATED, MEDROGESTONE) [Concomitant]
  4. LYRICA [Concomitant]
  5. TOPROL-XL [Concomitant]
  6. LISINOPRIL [Concomitant]
  7. PREVACID [Concomitant]
  8. PROMETHAZINE [Concomitant]
  9. NORCO [Concomitant]

REACTIONS (1)
  - PANCREATITIS [None]
